FAERS Safety Report 6793316-5 (Version None)
Quarter: 2010Q2

REPORT INFORMATION
  Report Type: 
  Country: None (occurrence: None)
  Receive Date: 20100624
  Receipt Date: 20091214
  Transmission Date: 20101027
  Serious: Yes (Other)
  Sender: FDA-Public Use
  Company Number: US-MYLANLABS-2009S1020060

PATIENT
  Age: 50 Year
  Sex: Female
  Weight: 50.8 kg

DRUGS (6)
  1. CLOZAPINE [Suspect]
     Indication: SCHIZOAFFECTIVE DISORDER
     Route: 048
     Dates: end: 20091021
  2. ANTINEOPLASTIC AGENTS [Suspect]
  3. VISTARIL [Concomitant]
  4. SYNTHROID [Concomitant]
  5. XOPENEX [Concomitant]
  6. LEVAQUIN [Concomitant]

REACTIONS (1)
  - LEUKOPENIA [None]
